FAERS Safety Report 5198875-4 (Version None)
Quarter: 2006Q4

REPORT INFORMATION
  Report Type: 
  Country: None (occurrence: None)
  Receive Date: 20060921
  Receipt Date: 20060321
  Transmission Date: 20070319
  Serious: Yes (Other)
  Sender: FDA-Public Use
  Company Number: 2006040006

PATIENT
  Age: 53 Year
  Sex: Female

DRUGS (5)
  1. ZYRTEC [Suspect]
     Indication: HYPERSENSITIVITY
     Dosage: 10 MG (10 MG, 1 IN 1 D), ORAL
     Route: 048
     Dates: start: 20040101
  2. ATENOLOL [Concomitant]
  3. METFORMIN HCL [Concomitant]
  4. QVAR (BECLOMETASONE DIPROPIONATE) [Concomitant]
  5. OMEPRAZOLE [Concomitant]

REACTIONS (2)
  - CHEST PAIN [None]
  - WEIGHT DECREASED [None]
